FAERS Safety Report 7980509-4 (Version None)
Quarter: 2011Q4

REPORT INFORMATION
  Report Type: 
  Country: None (occurrence: None)
  Receive Date: 20111214
  Receipt Date: 20111208
  Transmission Date: 20120403
  Serious: Yes (Death)
  Sender: FDA-Public Use
  Company Number: US-GLAXOSMITHKLINE-A0958078A

PATIENT
  Age: 57 Year
  Sex: Female

DRUGS (6)
  1. TYKERB [Suspect]
     Dosage: 1000MG PER DAY
     Route: 048
     Dates: start: 20091101
  2. PRILOSEC [Concomitant]
  3. ZOLOFT [Concomitant]
  4. CITRACAL + D [Concomitant]
  5. HERCEPTIN [Concomitant]
  6. VITAMIN D [Concomitant]

REACTIONS (1)
  - DEATH [None]
